FAERS Safety Report 18657876 (Version 2)
Quarter: 2021Q2

REPORT INFORMATION
  Report Type: Spontaneous
  Country: BE (occurrence: BE)
  Receive Date: 20201223
  Receipt Date: 20210622
  Transmission Date: 20210717
  Serious: Yes (Hospitalization)
  Sender: FDA-Public Use
  Company Number: BE-MYLANLABS-2020M1103072

PATIENT
  Age: 12 Year
  Sex: Male

DRUGS (6)
  1. PROPRANOLOL [Suspect]
     Active Substance: PROPRANOLOL HYDROCHLORIDE
     Indication: HYPERAROUSAL
     Dosage: UNK
  2. RISPERIDONE. [Concomitant]
     Active Substance: RISPERIDONE
     Indication: BEHAVIOUR DISORDER
     Route: 065
  3. QUETIAPINE. [Suspect]
     Active Substance: QUETIAPINE
     Indication: BEHAVIOUR DISORDER
     Dosage: 800 MILLIGRAM, QD
     Route: 048
  4. PIPAMPERONE [Concomitant]
     Active Substance: PIPAMPERONE
     Indication: BEHAVIOUR DISORDER
     Route: 065
  5. ARIPIPRAZOLE. [Suspect]
     Active Substance: ARIPIPRAZOLE
     Indication: BEHAVIOUR DISORDER
     Dosage: 15 MILLIGRAM
     Route: 065
  6. METHYLPHENIDATE. [Concomitant]
     Active Substance: METHYLPHENIDATE
     Indication: ATTENTION DEFICIT HYPERACTIVITY DISORDER
     Route: 065

REACTIONS (4)
  - Anxiety [Recovering/Resolving]
  - Off label use [Unknown]
  - Loss of personal independence in daily activities [Recovering/Resolving]
  - Tardive dyskinesia [Recovering/Resolving]
